FAERS Safety Report 24669134 (Version 1)
Quarter: 2024Q4

REPORT INFORMATION
  Report Type: Spontaneous
  Country: US (occurrence: US)
  Receive Date: 20241127
  Receipt Date: 20241127
  Transmission Date: 20250115
  Serious: Yes (Life-Threatening, Hospitalization)
  Sender: STRIDES
  Company Number: US-STRIDES ARCOLAB LIMITED-2024SP015327

PATIENT
  Age: 77 Year
  Sex: Female

DRUGS (4)
  1. TOPIRAMATE [Suspect]
     Active Substance: TOPIRAMATE
     Indication: Schizophrenia
     Dosage: 25 MILLIGRAM, BID
     Route: 065
  2. CITALOPRAM [Suspect]
     Active Substance: CITALOPRAM
     Indication: Schizophrenia
     Dosage: 40 MILLIGRAM, OD
     Route: 065
  3. CLONAZEPAM [Suspect]
     Active Substance: CLONAZEPAM
     Indication: Schizophrenia
     Dosage: 1 MILLIGRAM, BID
     Route: 065
  4. QUETIAPINE [Suspect]
     Active Substance: QUETIAPINE
     Indication: Schizophrenia
     Dosage: 400 MILLIGRAM, OD
     Route: 065

REACTIONS (3)
  - Catatonia [Recovered/Resolved]
  - Hallucination [Recovered/Resolved]
  - Drug ineffective for unapproved indication [Unknown]
